FAERS Safety Report 4934125-9 (Version None)
Quarter: 2006Q1

REPORT INFORMATION
  Report Type: 
  Country: None (occurrence: None)
  Receive Date: 20060303
  Receipt Date: 20060221
  Transmission Date: 20060701
  Serious: Yes (Hospitalization)
  Sender: FDA-Public Use
  Company Number: 2005171807

PATIENT
  Age: 32 Year
  Sex: Female
  Weight: 114.3065 kg

DRUGS (3)
  1. DEPO-PROVERA [Suspect]
     Indication: CONTRACEPTION
     Dosage: SEE IMAGE
     Dates: start: 20040701, end: 20040701
  2. WELLBUTRIN [Concomitant]
  3. TOPAMAX [Concomitant]

REACTIONS (6)
  - ABDOMINAL PAIN [None]
  - AMENORRHOEA [None]
  - CYST [None]
  - ENDOMETRIAL HYPERPLASIA [None]
  - LACTOSE INTOLERANCE [None]
  - UTERINE POLYP [None]
